FAERS Safety Report 4832779-9 (Version None)
Quarter: 2005Q4

REPORT INFORMATION
  Report Type: 
  Country: None (occurrence: None)
  Receive Date: 20051121
  Receipt Date: 20051107
  Transmission Date: 20060501
  Serious: Yes (Hospitalization)
  Sender: FDA-Public Use
  Company Number: US-KINGPHARMUSA00001-K200501452

PATIENT
  Age: 77 Year
  Sex: Male

DRUGS (4)
  1. ALTACE [Suspect]
     Indication: HYPERTENSION
     Dosage: 2 TABLETS, QD
     Route: 048
     Dates: start: 20030101, end: 20050101
  2. ALTACE [Suspect]
     Dosage: 1 TABLET, QD EVENINGS
     Route: 048
     Dates: start: 20050101
  3. PIRETANIDE [Suspect]
     Indication: HYPERTENSION
     Dosage: 2 TABLETS, QD
     Route: 048
     Dates: start: 20030101, end: 20050101
  4. PIRETANIDE [Suspect]
     Dosage: 1 TABLET, QD EVENINGS
     Route: 048
     Dates: start: 20050101

REACTIONS (4)
  - ATRIOVENTRICULAR BLOCK COMPLETE [None]
  - BRADYCARDIA [None]
  - RESPIRATORY ARREST [None]
  - SYNCOPE [None]
